FAERS Safety Report 6097278-8 (Version None)
Quarter: 2009Q1

REPORT INFORMATION
  Report Type: 
  Country: None (occurrence: None)
  Receive Date: 20090227
  Receipt Date: 20081003
  Transmission Date: 20090719
  Serious: No
  Sender: FDA-Public Use
  Company Number: A0724103A

PATIENT
  Age: 27 Year
  Sex: Female
  Weight: 74.5 kg

DRUGS (2)
  1. THIOGUANINE [Suspect]
     Route: 048
     Dates: end: 20080401
  2. NO CONCURRENT MEDICATION [Concomitant]

REACTIONS (1)
  - DRUG EXPOSURE DURING PREGNANCY [None]
